FAERS Safety Report 24394884 (Version 2)
Quarter: 2024Q4

REPORT INFORMATION
  Report Type: Spontaneous
  Country: CA (occurrence: CA)
  Receive Date: 20241004
  Receipt Date: 20241016
  Transmission Date: 20250114
  Serious: Yes (Hospitalization, Other)
  Sender: CELLTRION
  Company Number: CA-CELLTRION INC.-2024CA023086

PATIENT

DRUGS (3)
  1. YUFLYMA [Suspect]
     Active Substance: ADALIMUMAB-AATY
     Indication: Crohn^s disease
     Dosage: 40 MG EVERY 2 WEEKS
     Route: 058
     Dates: start: 20240118
  2. YUFLYMA [Suspect]
     Active Substance: ADALIMUMAB-AATY
     Dosage: 40 MG EVERY 2 WEEKS
     Route: 058
     Dates: start: 20240816
  3. PREDNISONE [Concomitant]
     Active Substance: PREDNISONE
     Dosage: ONLY AT DOSE 15MG DAILY STARTED A 50MG AND WEANING OFF NEXT WEEK DOWN TO 10MG TILL DOWN TO ZERO AS P

REACTIONS (8)
  - Asthenia [Recovering/Resolving]
  - Fatigue [Recovering/Resolving]
  - Nausea [Recovering/Resolving]
  - Sepsis [Recovering/Resolving]
  - Postoperative abscess [Unknown]
  - Abscess intestinal [Unknown]
  - Impaired healing [Unknown]
  - Intentional dose omission [Unknown]
